FAERS Safety Report 24976926 (Version 2)
Quarter: 2025Q1

REPORT INFORMATION
  Report Type: Spontaneous
  Country: BR (occurrence: BR)
  Receive Date: 20250217
  Receipt Date: 20250220
  Transmission Date: 20250409
  Serious: Yes (Other)
  Sender: PFIZER
  Company Number: BR-PFIZER INC-PV202500018453

PATIENT
  Age: 59 Year
  Sex: Female

DRUGS (4)
  1. TALIGLUCERASE ALFA [Suspect]
     Active Substance: TALIGLUCERASE ALFA
     Indication: Gaucher^s disease
     Route: 042
     Dates: start: 20171207
  2. PROMETHAZINE [Concomitant]
     Active Substance: PROMETHAZINE HYDROCHLORIDE
  3. PREGABALIN [Concomitant]
     Active Substance: PREGABALIN
  4. BENSERAZIDE\LEVODOPA [Concomitant]
     Active Substance: BENSERAZIDE\LEVODOPA

REACTIONS (6)
  - Parkinson^s disease [Not Recovered/Not Resolved]
  - Shoulder operation [Unknown]
  - Prosthesis implantation [Unknown]
  - Prosthesis implantation [Unknown]
  - Memory impairment [Unknown]
  - Impaired reasoning [Unknown]

NARRATIVE: CASE EVENT DATE: 20220101
